FAERS Safety Report 11662344 (Version 2)
Quarter: 2015Q4

REPORT INFORMATION
  Report Type: Report from Study
  Country: CA (occurrence: CA)
  Receive Date: 20151027
  Receipt Date: 20151118
  Transmission Date: 20160304
  Serious: Yes (Other)
  Sender: FDA-Public Use
  Company Number: CA-ROCHE-ITM201411IM007671

PATIENT
  Sex: Female
  Weight: 68 kg

DRUGS (21)
  1. ESBRIET [Suspect]
     Active Substance: PIRFENIDONE
     Route: 048
     Dates: start: 20141122
  2. ESBRIET [Suspect]
     Active Substance: PIRFENIDONE
     Route: 048
     Dates: start: 20141129
  3. PREDNISONE. [Concomitant]
     Active Substance: PREDNISONE
  4. NORVASC [Concomitant]
     Active Substance: AMLODIPINE BESYLATE
  5. ESBRIET [Suspect]
     Active Substance: PIRFENIDONE
     Route: 048
     Dates: start: 20140717
  6. ESBRIET [Suspect]
     Active Substance: PIRFENIDONE
     Route: 048
     Dates: start: 20141206, end: 20150918
  7. LIPITOR [Concomitant]
     Active Substance: ATORVASTATIN CALCIUM
  8. VENTOLIN [Concomitant]
     Active Substance: ALBUTEROL SULFATE
  9. ESBRIET [Suspect]
     Active Substance: PIRFENIDONE
     Route: 048
     Dates: start: 20140528
  10. ACETYLCYSTEINE. [Concomitant]
     Active Substance: ACETYLCYSTEINE
  11. ASA [Concomitant]
     Active Substance: ASPIRIN
  12. INFLUENZA VACCINE [Concomitant]
     Active Substance: INFLUENZA VIRUS VACCINE
  13. ESBRIET [Suspect]
     Active Substance: PIRFENIDONE
     Indication: IDIOPATHIC PULMONARY FIBROSIS
     Route: 048
     Dates: start: 20140521
  14. RAMIPRIL. [Concomitant]
     Active Substance: RAMIPRIL
  15. MELOXICAM. [Concomitant]
     Active Substance: MELOXICAM
  16. FUROSEMIDE. [Concomitant]
     Active Substance: FUROSEMIDE
  17. ESBRIET [Suspect]
     Active Substance: PIRFENIDONE
     Route: 048
     Dates: start: 20150818
  18. METFORMIN [Concomitant]
     Active Substance: METFORMIN HYDROCHLORIDE
  19. HUMALOG [Concomitant]
     Active Substance: INSULIN LISPRO
  20. LANTUS [Concomitant]
     Active Substance: INSULIN GLARGINE
  21. ESBRIET [Suspect]
     Active Substance: PIRFENIDONE
     Route: 048
     Dates: start: 20150625

REACTIONS (8)
  - Skin exfoliation [Unknown]
  - Pyrexia [Unknown]
  - Dyspnoea [Unknown]
  - Rash [Unknown]
  - Rales [Unknown]
  - Decreased appetite [Unknown]
  - Skin depigmentation [Unknown]
  - Nausea [Unknown]
